FAERS Safety Report 7043256 (Version 2)
Quarter: 2012Q4

REPORT INFORMATION
  Report Type: 
  Country: MX (occurrence: MX)
  Receive Date: 20090707
  Receipt Date: 20121231
  Transmission Date: 20130627
  Serious: Yes (Life-Threatening, Hospitalization)
  Sender: FDA-Public Use
  Company Number: PHHY2009MX26997

PATIENT
  Age: 85 None
  Sex: Female

DRUGS (3)
  1. CO-DIOVAN [Suspect]
     Indication: HYPERTENSION
     Dosage: 1 DF (80 mg vals and 12.5 mg HCTZ), daily
     Route: 048
     Dates: start: 200611
  2. PLAVIX [Concomitant]
     Dosage: 1 UKN, daily
     Dates: start: 200712
  3. ISOSORBIDE [Concomitant]
     Dosage: 1 UKN, daily
     Dates: start: 201212

REACTIONS (4)
  - Cardiac failure [Recovered/Resolved]
  - Diabetes mellitus [Unknown]
  - Blood glucose increased [Recovered/Resolved]
  - Oxygen consumption decreased [Recovered/Resolved]
